FAERS Safety Report 7289380-X (Version None)
Quarter: 2011Q1

REPORT INFORMATION
  Report Type: 
  Country: None (occurrence: None)
  Receive Date: 20110211
  Receipt Date: 20110202
  Transmission Date: 20110831
  Serious: Yes (Other)
  Sender: FDA-Public Use
  Company Number: PHHY2010US75682

PATIENT
  Sex: Female

DRUGS (2)
  1. GILENYA [Suspect]
     Indication: MULTIPLE SCLEROSIS
     Dosage: 0.5 MG, QD
     Route: 048
     Dates: start: 20101106
  2. VOLTAREN [Concomitant]

REACTIONS (12)
  - INFLUENZA LIKE ILLNESS [None]
  - FATIGUE [None]
  - ABDOMINAL PAIN UPPER [None]
  - PYREXIA [None]
  - COUGH [None]
  - DIZZINESS [None]
  - OROPHARYNGEAL PAIN [None]
  - BACK PAIN [None]
  - RHINITIS [None]
  - BODY TEMPERATURE INCREASED [None]
  - DIARRHOEA [None]
  - PAIN [None]
